FAERS Safety Report 4706204-2 (Version None)
Quarter: 2005Q2

REPORT INFORMATION
  Report Type: 
  Country: None (occurrence: None)
  Receive Date: 20050629
  Receipt Date: 20050616
  Transmission Date: 20051028
  Serious: Yes (Other)
  Sender: FDA-Public Use
  Company Number: 2005089436

PATIENT
  Sex: Male
  Weight: 103.4201 kg

DRUGS (1)
  1. NICOTROL [Suspect]
     Indication: SMOKING CESSATION THERAPY
     Dosage: (21 MG) PATCH QD, TRANSDERMAL
     Route: 062
     Dates: start: 19990101, end: 19990101

REACTIONS (3)
  - APPLICATION SITE IRRITATION [None]
  - APPLICATION SITE REACTION [None]
  - CEREBROVASCULAR ACCIDENT [None]
